FAERS Safety Report 14705060 (Version 1)
Quarter: 2018Q2

REPORT INFORMATION
  Report Type: Spontaneous
  Country: US (occurrence: US)
  Receive Date: 20180402
  Receipt Date: 20180402
  Transmission Date: 20180711
  Serious: Yes (Other)
  Sender: FDA-Public Use
  Company Number: US-TEVA-2018-US-876807

PATIENT
  Age: 48 Year
  Sex: Female

DRUGS (3)
  1. OBINUTUZUMAB. [Suspect]
     Active Substance: OBINUTUZUMAB
     Indication: HAIRY CELL LEUKAEMIA
     Dosage: 1000 MG (100 MG ON DAY 1 AND 900 MG ON DAY 2) (DAYS 1, 8, AND 15, CYCLE 1;CYCLES 2-6), EVERY4 WEEK
     Route: 065
  2. PEGFILGRASTIM [Concomitant]
     Active Substance: PEGFILGRASTIM
     Indication: HAIRY CELL LEUKAEMIA
     Route: 065
  3. BENDAMUSTINE HYDROCHLORIDE. [Suspect]
     Active Substance: BENDAMUSTINE HYDROCHLORIDE
     Indication: HAIRY CELL LEUKAEMIA
     Dosage: (DAYS 1 AND 2, CYCLES 1-6)
     Route: 042

REACTIONS (2)
  - Prescribed underdose [Unknown]
  - Toxicity to various agents [Unknown]
